FAERS Safety Report 12908683 (Version 1)
Quarter: 2016Q4

REPORT INFORMATION
  Report Type: Spontaneous
  Country: US (occurrence: US)
  Receive Date: 20161103
  Receipt Date: 20161103
  Transmission Date: 20170207
  Serious: No
  Sender: FDA-Public Use
  Company Number: US-ELI_LILLY_AND_COMPANY-US201611000557

PATIENT
  Sex: Male

DRUGS (3)
  1. HUMALOG [Suspect]
     Active Substance: INSULIN LISPRO
     Indication: TYPE 1 DIABETES MELLITUS
     Dosage: ON A SLIDING SCALE BETWEEN 30-50 UNITS
     Route: 065
     Dates: start: 1966
  2. HUMALOG [Suspect]
     Active Substance: INSULIN LISPRO
     Dosage: ON A SLIDING SCALE BETWEEN 30-50 UNITS
     Route: 065
  3. LEVEMIR [Concomitant]
     Active Substance: INSULIN DETEMIR

REACTIONS (2)
  - Incorrect product storage [Unknown]
  - Blood glucose increased [Recovered/Resolved]
